FAERS Safety Report 9401545 (Version 1)
Quarter: 2013Q3

REPORT INFORMATION
  Report Type: Spontaneous
  Country: US (occurrence: US)
  Receive Date: 20130716
  Receipt Date: 20130716
  Transmission Date: 20140515
  Serious: Yes (Other)
  Sender: FDA-Public Use
  Company Number: US-ASTRAZENECA-2013SE51434

PATIENT
  Sex: 0

DRUGS (6)
  1. CRESTOR [Suspect]
     Indication: CARDIOVASCULAR DISORDER
     Route: 064
     Dates: end: 201208
  2. MACRODANTIN [Concomitant]
     Indication: ANTIBIOTIC THERAPY
  3. DEXTROAMPHETAMINE [Concomitant]
  4. DANZICITRION [Concomitant]
     Indication: NAUSEA
  5. DANZICITRION [Concomitant]
     Indication: VOMITING
  6. OTHER STATINS [Concomitant]

REACTIONS (2)
  - Foetal exposure during pregnancy [Recovered/Resolved]
  - Optic nerve hypoplasia [Unknown]
